FAERS Safety Report 7916934-7 (Version None)
Quarter: 2011Q4

REPORT INFORMATION
  Report Type: 
  Country: None (occurrence: None)
  Receive Date: 20111116
  Receipt Date: 20111109
  Transmission Date: 20120403
  Serious: Yes (Other)
  Sender: FDA-Public Use
  Company Number: JP-SANOFI-AVENTIS-2011SA071296

PATIENT

DRUGS (1)
  1. PLAVIX [Suspect]
     Dosage: TAKEN INTERNALLY
     Route: 065

REACTIONS (1)
  - RHABDOMYOLYSIS [None]
